FAERS Safety Report 6133352-5 (Version None)
Quarter: 2009Q1

REPORT INFORMATION
  Report Type: 
  Country: None (occurrence: None)
  Receive Date: 20090324
  Receipt Date: 20090314
  Transmission Date: 20090719
  Serious: Yes (Other)
  Sender: FDA-Public Use
  Company Number: CHPA2009US06868

PATIENT
  Age: 81 Year
  Sex: Female
  Weight: 86.2 kg

DRUGS (4)
  1. EX-LAX REG STR CHOCOLATED LAX PCS SEN (NCH)(SENNA GLYCOSIDES (CA SALTS [Suspect]
     Indication: CONSTIPATION
     Dosage: 30 MG, QD, ORAL
     Route: 048
  2. ANTIHYPERTENSIVE DRUGS (NO INGREDIENTS/SUBSTANCES) [Concomitant]
  3. DRUG THERAPY NOS (DRUG THERAPY NOS) [Concomitant]
  4. MIRALAX [Concomitant]

REACTIONS (5)
  - DIABETES MELLITUS [None]
  - DRUG INEFFECTIVE [None]
  - HYPERTENSION [None]
  - INTENTIONAL DRUG MISUSE [None]
  - MEMORY IMPAIRMENT [None]
